FAERS Safety Report 8261576-X (Version None)
Quarter: 2012Q2

REPORT INFORMATION
  Report Type: 
  Country: None (occurrence: None)
  Receive Date: 20120402
  Receipt Date: 20120320
  Transmission Date: 20120825
  Serious: Yes (Hospitalization)
  Sender: FDA-Public Use
  Company Number: JPI-P-006251

PATIENT
  Age: 38 Year
  Sex: Female

DRUGS (5)
  1. MODAFINIL [Concomitant]
  2. ESCITALOPRAM OXALATE [Concomitant]
  3. XYREM [Suspect]
     Indication: NARCOLEPSY
     Dosage: 4.5;9 GM (2.25;4.5GM, 2 IN 1 D), ORAL
     Route: 048
     Dates: start: 20081126
  4. XYREM [Suspect]
     Indication: NARCOLEPSY
     Dosage: 4.5;9 GM (2.25;4.5GM, 2 IN 1 D), ORAL
     Route: 048
     Dates: start: 20081111
  5. AMPHETAMINE, DEXTROAMPHETAMINE MIXED SALTS [Concomitant]

REACTIONS (1)
  - HAEMORRHAGE [None]
